FAERS Safety Report 7500668-7 (Version None)
Quarter: 2011Q2

REPORT INFORMATION
  Report Type: 
  Country: None (occurrence: None)
  Receive Date: 20110524
  Receipt Date: 20110519
  Transmission Date: 20111010
  Serious: Yes (Disabling)
  Sender: FDA-Public Use
  Company Number: US-MERCK-1105USA03056

PATIENT

DRUGS (6)
  1. ZETIA [Suspect]
     Indication: BLOOD TRIGLYCERIDES
     Route: 048
  2. LOPID [Concomitant]
     Route: 065
  3. LIPITOR [Concomitant]
     Route: 065
  4. DEMADEX [Concomitant]
     Route: 065
  5. POTASSIUM (UNSPECIFIED) [Concomitant]
     Route: 065
  6. DIOVAN [Concomitant]
     Route: 065

REACTIONS (1)
  - RENAL FAILURE [None]
